FAERS Safety Report 6383824-3 (Version None)
Quarter: 2009Q3

REPORT INFORMATION
  Report Type: 
  Country: None (occurrence: None)
  Receive Date: 20090929
  Receipt Date: 20090929
  Transmission Date: 20100115
  Serious: Yes (Other)
  Sender: FDA-Public Use
  Company Number: None

PATIENT
  Sex: Female
  Weight: 58.0604 kg

DRUGS (1)
  1. NUVARING [Suspect]
     Indication: CONTRACEPTION
     Dosage: 1 RING PER MONTH VAG
     Route: 067
     Dates: start: 20060901, end: 20070701

REACTIONS (5)
  - AMENORRHOEA [None]
  - ANAEMIA [None]
  - ANOVULATORY CYCLE [None]
  - BLOOD OESTROGEN DECREASED [None]
  - OSTEOPENIA [None]
